FAERS Safety Report 18168716 (Version 3)
Quarter: 2020Q3

REPORT INFORMATION
  Report Type: Spontaneous
  Country: US (occurrence: US)
  Receive Date: 20200819
  Receipt Date: 20200907
  Transmission Date: 20201103
  Serious: No
  Sender: FDA-Public Use
  Company Number: US-BIOGEN-2020BI00911576

PATIENT
  Age: 46 Year
  Sex: Female

DRUGS (1)
  1. TYSABRI [Suspect]
     Active Substance: NATALIZUMAB
     Indication: MULTIPLE SCLEROSIS
     Route: 042
     Dates: start: 20170818

REACTIONS (4)
  - Infusion site bruising [Unknown]
  - Infusion site inflammation [Unknown]
  - Poor venous access [Unknown]
  - Emotional distress [Unknown]

NARRATIVE: CASE EVENT DATE: 20170818
